FAERS Safety Report 14514248 (Version 2)
Quarter: 2018Q1

REPORT INFORMATION
  Report Type: Spontaneous
  Country: GR (occurrence: GR)
  Receive Date: 20180209
  Receipt Date: 20180221
  Transmission Date: 20180509
  Serious: Yes (Hospitalization)
  Sender: FDA-Public Use
  Company Number: GR-ELI_LILLY_AND_COMPANY-GR201802000541

PATIENT
  Age: 62 Year
  Sex: Male

DRUGS (6)
  1. SEROR [Concomitant]
     Indication: BIPOLAR DISORDER
     Dosage: UNK, DAILY
     Route: 065
  2. DEPAKINE CHRONO [Concomitant]
     Active Substance: VALPROATE SODIUM
     Indication: BIPOLAR DISORDER
     Dosage: 1 IU, EACH MORNING
     Route: 065
  3. DEPAKINE CHRONO [Concomitant]
     Active Substance: VALPROATE SODIUM
     Dosage: 2 IU, EACH EVENING
     Route: 065
  4. ALOPERIDIN                         /00027401/ [Concomitant]
     Indication: BIPOLAR DISORDER
     Dosage: UNK, UNKNOWN
     Route: 065
  5. AKINETON [Concomitant]
     Active Substance: BIPERIDEN HYDROCHLORIDE
     Indication: BIPOLAR DISORDER
     Dosage: 4 MG, DAILY
     Route: 065
  6. ZYPADHERA [Suspect]
     Active Substance: OLANZAPINE PAMOATE
     Indication: BIPOLAR DISORDER
     Dosage: 405 MG, OTHER
     Route: 030
     Dates: start: 20140613

REACTIONS (9)
  - Dizziness [Recovered/Resolved]
  - Rhinorrhoea [Unknown]
  - Overdose [Unknown]
  - Toxicity to various agents [Recovered/Resolved]
  - Post-injection delirium sedation syndrome [Unknown]
  - Asthenia [Recovered/Resolved]
  - Echocardiogram abnormal [Recovered/Resolved]
  - Somnolence [Recovered/Resolved]
  - Off label use [Unknown]

NARRATIVE: CASE EVENT DATE: 201801
